FAERS Safety Report 19213145 (Version 1)
Quarter: 2021Q2

REPORT INFORMATION
  Report Type: Spontaneous
  Country: JP (occurrence: JP)
  Receive Date: 20210504
  Receipt Date: 20210504
  Transmission Date: 20210717
  Serious: Yes (Hospitalization, Other)
  Sender: FDA-Public Use
  Company Number: JP-EXELIXIS-CABO-21037531

PATIENT
  Age: 66 Year
  Sex: Male
  Weight: 85 kg

DRUGS (11)
  1. TAKECAB [Concomitant]
     Active Substance: VONOPRAZAN FUMARATE
     Indication: GASTROOESOPHAGEAL REFLUX DISEASE
     Dosage: 20 MILLIGRAM, QD
     Route: 048
     Dates: start: 20190620
  2. FUROSEMIDE. [Concomitant]
     Active Substance: FUROSEMIDE
     Indication: ASCITES
     Dosage: 10 MILLIGRAM, QD
     Route: 048
     Dates: start: 20200416
  3. TOPILORIC [Concomitant]
     Active Substance: TOPIROXOSTAT
     Indication: HYPERURICAEMIA
     Dosage: 20 MILLIGRAM, BID
     Route: 048
     Dates: start: 20210108
  4. CABOMETYX [Suspect]
     Active Substance: CABOZANTINIB S-MALATE
     Indication: HEPATOCELLULAR CARCINOMA
     Dosage: 40 MG, QD
     Route: 048
     Dates: start: 20210106, end: 20210202
  5. BAYASPIRIN [Concomitant]
     Active Substance: ASPIRIN
     Indication: VENOUS STENT INSERTION
     Dosage: 100 MILLIGRAM, QD
     Route: 048
     Dates: start: 20200430
  6. KAYEXALATE [Concomitant]
     Active Substance: SODIUM POLYSTYRENE SULFONATE
     Indication: HYPERKALAEMIA
     Dosage: 3 DOSAGE FORM, TID
     Route: 048
     Dates: start: 20201022, end: 20210202
  7. TERBINAFINE. [Concomitant]
     Active Substance: TERBINAFINE
     Dosage: UNK
     Route: 065
  8. SPIRONOLACTONE. [Concomitant]
     Active Substance: SPIRONOLACTONE
     Indication: ASCITES
     Dosage: 50 MILLIGRAM, QD
     Route: 048
     Dates: start: 20200416
  9. AMINOLEBAN EN [Concomitant]
     Active Substance: UNSPECIFIED INGREDIENT
     Indication: HEPATIC CIRRHOSIS
     Dosage: 50 GRAM, QD
     Route: 048
     Dates: start: 20190620, end: 20210216
  10. LIVACT [Concomitant]
     Active Substance: AMINO ACIDS, SOURCE UNSPECIFIED
     Indication: HEPATIC CIRRHOSIS
     Dosage: 4.15 GRAM, TID
     Route: 048
     Dates: start: 20190729
  11. SAMSCA [Concomitant]
     Active Substance: TOLVAPTAN
     Indication: ASCITES
     Dosage: 7.5 MILLIGRAM, QD
     Route: 048
     Dates: start: 20200424

REACTIONS (4)
  - Small intestinal haemorrhage [Recovered/Resolved]
  - Colitis ulcerative [Unknown]
  - Colitis [Unknown]
  - Varices oesophageal [Unknown]

NARRATIVE: CASE EVENT DATE: 20210202
